FAERS Safety Report 6061400-X (Version None)
Quarter: 2009Q1

REPORT INFORMATION
  Report Type: 
  Country: None (occurrence: None)
  Receive Date: 20090129
  Receipt Date: 20090129
  Transmission Date: 20090719
  Serious: No
  Sender: FDA-Public Use
  Company Number: None

PATIENT
  Sex: Female
  Weight: 70.3075 kg

DRUGS (1)
  1. ETODOLAC [Suspect]
     Indication: OSTEITIS
     Dosage: 400MG  2 TIMES A DAY PO
     Route: 048
     Dates: start: 20090113, end: 20090127

REACTIONS (2)
  - RASH GENERALISED [None]
  - RASH MACULAR [None]
